FAERS Safety Report 4771100-1 (Version None)
Quarter: 2005Q3

REPORT INFORMATION
  Report Type: 
  Country: None (occurrence: None)
  Receive Date: 20050914
  Receipt Date: 20050901
  Transmission Date: 20060218
  Serious: Yes (Other)
  Sender: FDA-Public Use
  Company Number: 2005123613

PATIENT
  Sex: Female
  Weight: 92.9874 kg

DRUGS (1)
  1. BENADRYL [Suspect]
     Indication: HYPERSENSITIVITY
     Dosage: AS  RECOMMENDED, ONCE, ORAL
     Route: 048

REACTIONS (1)
  - HALLUCINATION [None]
